FAERS Safety Report 11958371 (Version 1)
Quarter: 2016Q1

REPORT INFORMATION
  Report Type: Report from Study
  Country: IL (occurrence: IL)
  Receive Date: 20160126
  Receipt Date: 20160126
  Transmission Date: 20160526
  Serious: Yes (Death)
  Sender: FDA-Public Use
  Company Number: IL-ROCHE-1699787

PATIENT

DRUGS (1)
  1. ALTEPLASE [Suspect]
     Active Substance: ALTEPLASE
     Indication: ENDOCARDITIS
     Dosage: FOR UP TO THREE TO SIX DOSES OF 0.1 TO 0.3 MG/KG/HOUR
     Route: 050

REACTIONS (1)
  - Intestine transplant rejection [Fatal]
